FAERS Safety Report 5832512-8 (Version None)
Quarter: 2008Q3

REPORT INFORMATION
  Report Type: 
  Country: None (occurrence: None)
  Receive Date: 20080731
  Receipt Date: 20080724
  Transmission Date: 20090109
  Serious: Yes (Hospitalization)
  Sender: FDA-Public Use
  Company Number: SPV1-2008-01559

PATIENT
  Age: 50 Year
  Sex: Male

DRUGS (1)
  1. FOSRENOL [Suspect]
     Indication: HYPERPHOSPHATAEMIA
     Dosage: 2250 MG, 1X/DAY:QD, ORAL
     Route: 048
     Dates: start: 20080401, end: 20080421

REACTIONS (4)
  - MEDICATION RESIDUE [None]
  - PERITONEAL ADHESIONS [None]
  - SUBILEUS [None]
  - WRONG TECHNIQUE IN DRUG USAGE PROCESS [None]
